FAERS Safety Report 6427605-0 (Version None)
Quarter: 2009Q4

REPORT INFORMATION
  Report Type: 
  Country: None (occurrence: None)
  Receive Date: 20091027
  Receipt Date: 20091013
  Transmission Date: 20100525
  Serious: Yes (Death, Other)
  Sender: FDA-Public Use
  Company Number: 2007314446

PATIENT
  Age: 2 Month
  Sex: Male

DRUGS (4)
  1. PSEUDOEPHEDRINE HCL [Suspect]
  2. CARBINOXAMINE MALEATE [Suspect]
  3. ANTIBITIOTICS (ANTIBIOTICS) [Concomitant]
  4. TYLENOL [Concomitant]

REACTIONS (3)
  - ANOXIC ENCEPHALOPATHY [None]
  - SUDDEN INFANT DEATH SYNDROME [None]
  - UNRESPONSIVE TO STIMULI [None]
